FAERS Safety Report 16817973 (Version 1)
Quarter: 2019Q3

REPORT INFORMATION
  Report Type: Report from Study
  Country: CA (occurrence: CA)
  Receive Date: 20190917
  Receipt Date: 20190917
  Transmission Date: 20191005
  Serious: Yes (Hospitalization)
  Sender: FDA-Public Use
  Company Number: CA-TAKEDA-2019TUS052441

PATIENT
  Age: 70 Year
  Sex: Male

DRUGS (11)
  1. VEDOLIZUMAB [Suspect]
     Active Substance: VEDOLIZUMAB
     Indication: COLITIS ULCERATIVE
     Dosage: 300 MILLIGRAM
     Route: 042
     Dates: start: 20160624
  2. METOPROLOL. [Concomitant]
     Active Substance: METOPROLOL
     Dosage: 12.5 MILLIGRAM, BID
  3. ACT EZETIMIBE [Concomitant]
     Dosage: 10 MILLIGRAM, QD
     Route: 048
  4. IMURAN [Concomitant]
     Active Substance: AZATHIOPRINE
     Dosage: 612.5 MILLIGRAM, QD
     Route: 048
  5. VEDOLIZUMAB [Suspect]
     Active Substance: VEDOLIZUMAB
     Dosage: 300 MILLIGRAM, Q4WEEKS
     Route: 042
     Dates: start: 20180126
  6. NITRO                              /00003201/ [Concomitant]
     Active Substance: NITROGLYCERIN
     Dosage: UNK
  7. ELIQUIS [Concomitant]
     Active Substance: APIXABAN
     Dosage: 5 MILLIGRAM, QD
     Route: 048
  8. TECTA [Suspect]
     Active Substance: PANTOPRAZOLE MAGNESIUM
     Indication: PRODUCT USED FOR UNKNOWN INDICATION
     Dosage: 40 MILLIGRAM, QD
     Route: 065
  9. ROSUVASTATIN CALCIUM. [Concomitant]
     Active Substance: ROSUVASTATIN CALCIUM
     Dosage: 5 MILLIGRAM, QD
  10. TRAMADOL/ACETAMINOPHEN [Concomitant]
     Active Substance: ACETAMINOPHEN\TRAMADOL
     Dosage: UNK
  11. PREDNISONE. [Concomitant]
     Active Substance: PREDNISONE
     Dosage: 5 MILLIGRAM, QD
     Route: 048

REACTIONS (2)
  - Off label use [Unknown]
  - Circulatory collapse [Unknown]

NARRATIVE: CASE EVENT DATE: 20180126
